FAERS Safety Report 5272123-9 (Version None)
Quarter: 2007Q1

REPORT INFORMATION
  Report Type: 
  Country: None (occurrence: None)
  Receive Date: 20070319
  Receipt Date: 20070302
  Transmission Date: 20070707
  Serious: No
  Sender: FDA-Public Use
  Company Number: 011462

PATIENT
  Sex: Female

DRUGS (1)
  1. CLARAVIS [Suspect]
     Dosage: UNK, UNK, ORAL
     Route: 048
     Dates: start: 20060315, end: 20070302

REACTIONS (5)
  - DRY EYE [None]
  - FOOT OPERATION [None]
  - HEADACHE [None]
  - INCREASED APPETITE [None]
  - VISION BLURRED [None]
